FAERS Safety Report 10571133 (Version 2)
Quarter: 2014Q4

REPORT INFORMATION
  Report Type: Spontaneous
  Country: RU (occurrence: RU)
  Receive Date: 20141107
  Receipt Date: 20141107
  Transmission Date: 20150529
  Serious: Yes (Hospitalization, Other)
  Sender: FDA-Public Use
  Company Number: RU-GLAXOSMITHKLINE-RU2014GSK010020

PATIENT
  Age: 26 Year
  Sex: Female
  Weight: 50 kg

DRUGS (3)
  1. METHYLPREDNISOLONE. [Concomitant]
     Active Substance: METHYLPREDNISOLONE
     Indication: PRODUCT USED FOR UNKNOWN INDICATION
     Dosage: 16 MG, UNK
     Dates: start: 201310
  2. PLAQUENIL [Concomitant]
     Active Substance: HYDROXYCHLOROQUINE SULFATE
     Indication: PRODUCT USED FOR UNKNOWN INDICATION
     Dosage: 200 MG, UNK
     Dates: start: 201310
  3. BELIMUMAB [Suspect]
     Active Substance: BELIMUMAB
     Indication: SYSTEMIC LUPUS ERYTHEMATOSUS
     Dosage: 500 MG, UNK
     Dates: start: 20140515, end: 20140814

REACTIONS (10)
  - Oropharyngeal pain [Unknown]
  - Arthralgia [Unknown]
  - Rash [Unknown]
  - Exposure during pregnancy [Unknown]
  - Leukocytosis [Unknown]
  - Pneumonia [Recovering/Resolving]
  - Asthenia [Unknown]
  - Musculoskeletal stiffness [Unknown]
  - Abortion spontaneous [Not Recovered/Not Resolved]
  - Cough [Unknown]

NARRATIVE: CASE EVENT DATE: 2014
